FAERS Safety Report 5152114-9 (Version None)
Quarter: 2006Q4

REPORT INFORMATION
  Report Type: 
  Country: None (occurrence: None)
  Receive Date: 20061113
  Receipt Date: 20061113
  Transmission Date: 20070319
  Serious: Yes (Life-Threatening, Hospitalization)
  Sender: FDA-Public Use
  Company Number: None

PATIENT
  Sex: Male
  Weight: 48.8 kg

DRUGS (1)
  1. CIPROFLOXACIN [Suspect]
     Indication: PERIANAL ABSCESS
     Dosage: 400MG BID IV
     Route: 042
     Dates: start: 20061017, end: 20061026

REACTIONS (2)
  - BRADYCARDIA [None]
  - ELECTROCARDIOGRAM QT PROLONGED [None]
